FAERS Safety Report 11100616 (Version 1)
Quarter: 2015Q2

REPORT INFORMATION
  Report Type: Spontaneous
  Country: GB (occurrence: GB)
  Receive Date: 20150508
  Receipt Date: 20150508
  Transmission Date: 20150821
  Serious: Yes (Disabling)
  Sender: FDA-Public Use
  Company Number: GB-009507513-1505GBR000695

PATIENT
  Age: 62 Year
  Sex: Female
  Weight: 53 kg

DRUGS (1)
  1. SIMVASTATIN. [Suspect]
     Active Substance: SIMVASTATIN
     Dates: start: 20150216

REACTIONS (3)
  - Visual impairment [Recovered/Resolved]
  - Amnesia [Recovered/Resolved]
  - Acute psychosis [Recovered/Resolved]

NARRATIVE: CASE EVENT DATE: 20150216
